FAERS Safety Report 24811854 (Version 1)
Quarter: 2025Q1

REPORT INFORMATION
  Report Type: Spontaneous
  Country: US (occurrence: US)
  Receive Date: 20250106
  Receipt Date: 20250106
  Transmission Date: 20250408
  Serious: No
  Sender: BRAINTREE
  Company Number: US-BRAINTREE LABORATORIES, INC.-2024BTE00289

PATIENT
  Age: 73 Year
  Sex: Female
  Weight: 65.771 kg

DRUGS (1)
  1. SUTAB [Suspect]
     Active Substance: MAGNESIUM SULFATE\POTASSIUM CHLORIDE\SODIUM SULFATE
     Indication: Colonoscopy
     Route: 048
     Dates: start: 20240515, end: 20240515

REACTIONS (9)
  - Anorectal discomfort [Recovered/Resolved]
  - Chemical burn of skin [Recovered/Resolved]
  - Haemorrhoidal haemorrhage [Not Recovered/Not Resolved]
  - Alkalinuria [Recovering/Resolving]
  - Urine electrolytes abnormal [Recovered/Resolved]
  - Malaise [Recovering/Resolving]
  - Abdominal pain upper [Recovered/Resolved]
  - Rash pruritic [Recovering/Resolving]
  - Urticaria [Recovering/Resolving]

NARRATIVE: CASE EVENT DATE: 20240515
